FAERS Safety Report 7552981-5 (Version None)
Quarter: 2011Q2

REPORT INFORMATION
  Report Type: 
  Country: None (occurrence: None)
  Receive Date: 20110616
  Receipt Date: 20110608
  Transmission Date: 20111010
  Serious: Yes (Hospitalization)
  Sender: FDA-Public Use
  Company Number: US-US-EMD SERONO, INC.-231943K08USA

PATIENT
  Sex: Female
  Weight: 96 kg

DRUGS (11)
  1. DIOVAN [Concomitant]
     Indication: HYPERTENSION
  2. SEROQUEL [Concomitant]
  3. REBIF [Suspect]
     Route: 058
  4. PREVACID [Concomitant]
  5. MOTRIN [Concomitant]
  6. ACTOS [Concomitant]
     Indication: DIABETES MELLITUS
  7. REBIF [Suspect]
     Indication: MULTIPLE SCLEROSIS
     Route: 058
     Dates: start: 20070809
  8. VALIUM [Concomitant]
  9. ZOLOFT [Concomitant]
  10. LANTUS [Concomitant]
     Indication: DIABETES MELLITUS
  11. WELLBUTRIN XL [Concomitant]

REACTIONS (2)
  - PANCREATITIS [None]
  - DEPRESSION [None]
